FAERS Safety Report 19068966 (Version 1)
Quarter: 2021Q1

REPORT INFORMATION
  Report Type: Spontaneous
  Country: US (occurrence: US)
  Receive Date: 20210329
  Receipt Date: 20210329
  Transmission Date: 20210420
  Serious: Yes (Other)
  Sender: FDA-Public Use
  Company Number: None

PATIENT
  Age: 70 Year
  Sex: Female
  Weight: 72.5 kg

DRUGS (11)
  1. HCTZ 25MG QD [Concomitant]
  2. LATANOPROST OPTHALMIC DROPS [Concomitant]
  3. CALCIUM 500MG BID [Concomitant]
  4. FASLODEX 500MG IM [Concomitant]
  5. LISINOPRIL 40MG QD [Concomitant]
  6. TUMS OTC PRN [Concomitant]
  7. LORATADINE 10MG QD [Concomitant]
  8. VITAMIN D 50,000 Q WK [Concomitant]
  9. PIQRAY [Suspect]
     Active Substance: ALPELISIB
     Indication: BREAST CANCER FEMALE
     Route: 048
     Dates: start: 20200924, end: 20210114
  10. PROLIA Q 6MO [Concomitant]
  11. IMODIUM OTC PRN [Concomitant]

REACTIONS (3)
  - Rash [None]
  - Peripheral swelling [None]
  - Diarrhoea [None]

NARRATIVE: CASE EVENT DATE: 20210114
